FAERS Safety Report 4871664-3 (Version None)
Quarter: 2006Q1

REPORT INFORMATION
  Report Type: 
  Country: None (occurrence: None)
  Receive Date: 20060104
  Receipt Date: 20051222
  Transmission Date: 20060701
  Serious: Yes (Hospitalization, Other)
  Sender: FDA-Public Use
  Company Number: PHEH2005US13824

PATIENT
  Age: 76 Year
  Sex: Male

DRUGS (5)
  1. LISINOPRIL [Suspect]
  2. DIOVAN [Suspect]
     Indication: HYPERTENSION
     Dosage: 80 MG, QD
     Dates: start: 20051024, end: 20051109
  3. DIOVAN [Suspect]
     Dosage: 80 MG, BID
     Dates: start: 20051110, end: 20051220
  4. METFORMIN [Concomitant]
     Dates: start: 20050908
  5. TOPROL-XL [Concomitant]
     Indication: HYPERTENSION
     Dosage: 80 MG, UNK

REACTIONS (2)
  - ANGIONEUROTIC OEDEMA [None]
  - SWOLLEN TONGUE [None]
